FAERS Safety Report 9781065 (Version 1)
Quarter: 2013Q4

REPORT INFORMATION
  Report Type: Spontaneous
  Country: FR (occurrence: FR)
  Receive Date: 20131224
  Receipt Date: 20131224
  Transmission Date: 20140711
  Serious: Yes (Hospitalization)
  Sender: FDA-Public Use
  Company Number: PHHY2013FR150285

PATIENT
  Age: 65 Year
  Sex: Female

DRUGS (9)
  1. DOXYCYCLINE SANDOZ [Suspect]
     Indication: STAPHYLOCOCCAL BACTERAEMIA
     Dosage: 100 MG, BID
     Route: 048
     Dates: start: 20110617, end: 20110817
  2. ALPRAZOLAM [Suspect]
     Indication: ANXIETY
     Dosage: 4 DF, QD
     Route: 048
     Dates: start: 201106, end: 20110718
  3. RIFADIN [Suspect]
     Indication: PRODUCT USED FOR UNKNOWN INDICATION
     Dosage: 600 MG, BID
     Route: 048
     Dates: start: 20110617
  4. THERALENE [Suspect]
     Indication: ANXIETY
     Dosage: 30 DRP, QD
     Route: 048
     Dates: start: 201106, end: 20110718
  5. IMOVANE [Suspect]
     Indication: INSOMNIA
     Dosage: 1 DF, QD
     Route: 048
     Dates: start: 201106, end: 20110718
  6. LEVOTHYROX [Concomitant]
     Indication: PRODUCT USED FOR UNKNOWN INDICATION
     Dosage: 100 MG, QD
     Route: 065
  7. FORLAX [Concomitant]
     Indication: PRODUCT USED FOR UNKNOWN INDICATION
     Route: 065
  8. LOVENOX [Concomitant]
     Indication: PRODUCT USED FOR UNKNOWN INDICATION
     Route: 065
  9. BETNEVAL [Concomitant]
     Indication: PRODUCT USED FOR UNKNOWN INDICATION
     Route: 065

REACTIONS (11)
  - Frontotemporal dementia [Unknown]
  - Logorrhoea [Unknown]
  - Echolalia [Unknown]
  - Tachyphrenia [Unknown]
  - Incoherent [Unknown]
  - Disinhibition [Unknown]
  - Speech disorder [Unknown]
  - Agitation [Unknown]
  - Negativism [Unknown]
  - Aggression [Unknown]
  - Abnormal behaviour [Unknown]
